FAERS Safety Report 18212652 (Version 1)
Quarter: 2020Q3

REPORT INFORMATION
  Report Type: Spontaneous
  Country: US (occurrence: US)
  Receive Date: 20200831
  Receipt Date: 20200831
  Transmission Date: 20201103
  Serious: No
  Sender: FDA-Public Use
  Company Number: US-TEVA-2020-US-1820894

PATIENT
  Age: 66 Year
  Sex: Female

DRUGS (18)
  1. AUSTEDO [Suspect]
     Active Substance: DEUTETRABENAZINE
     Dosage: 36 MILLIGRAM DAILY;
     Route: 048
  2. ZOLOFT [Suspect]
     Active Substance: SERTRALINE HYDROCHLORIDE
     Route: 065
  3. LAMOTRIGINE. [Concomitant]
     Active Substance: LAMOTRIGINE
     Route: 065
  4. ASPIRIN EC 81 MG [Concomitant]
     Route: 065
  5. B COMPLEX TABLET [Concomitant]
     Route: 065
  6. AMARYL [Suspect]
     Active Substance: GLIMEPIRIDE
     Route: 065
  7. METFORMIN [Concomitant]
     Active Substance: METFORMIN HYDROCHLORIDE
     Route: 065
  8. REMERON [Suspect]
     Active Substance: MIRTAZAPINE
     Route: 065
  9. CLONAZEPAM. [Concomitant]
     Active Substance: CLONAZEPAM
     Route: 065
  10. SOMA [Suspect]
     Active Substance: CARISOPRODOL
     Route: 065
  11. LEVOTHYROXINE SODIUM. [Concomitant]
     Active Substance: LEVOTHYROXINE SODIUM
     Route: 065
  12. CALCIUM + D3 600 MG?500 [Concomitant]
     Route: 065
  13. PRAVASTATIN SODIUM 10 MG [Concomitant]
     Active Substance: PRAVASTATIN SODIUM
     Route: 065
  14. OMEPRAZOLE 10 MG [Concomitant]
     Active Substance: OMEPRAZOLE
     Route: 065
  15. GLIMEPIRIDE. [Concomitant]
     Active Substance: GLIMEPIRIDE
     Route: 065
  16. AUSTEDO [Suspect]
     Active Substance: DEUTETRABENAZINE
     Indication: TARDIVE DYSKINESIA
     Route: 048
     Dates: start: 201907
  17. NORVASC [Concomitant]
     Active Substance: AMLODIPINE BESYLATE
     Route: 065
  18. VITAMIN D?400 [Concomitant]
     Route: 065

REACTIONS (4)
  - Dyspnoea [Unknown]
  - Weight increased [Unknown]
  - Feeling abnormal [Unknown]
  - Balance disorder [Unknown]

NARRATIVE: CASE EVENT DATE: 202008
